FAERS Safety Report 10112526 (Version 1)
Quarter: 2014Q2

REPORT INFORMATION
  Report Type: Spontaneous
  Country: US (occurrence: US)
  Receive Date: 20140425
  Receipt Date: 20140425
  Transmission Date: 20141212
  Serious: No
  Sender: FDA-Public Use
  Company Number: US-009507513-1404USA010283

PATIENT
  Sex: Female

DRUGS (2)
  1. MIRALAX [Suspect]
     Indication: PRODUCT USED FOR UNKNOWN INDICATION
     Dosage: FULL DOSE, UNKNOWN
     Route: 048
  2. MIRALAX [Suspect]
     Dosage: HALF DOSE, UNKNOWN
     Route: 048

REACTIONS (4)
  - Dizziness [Recovered/Resolved]
  - Dizziness [Unknown]
  - Intentional underdose [Unknown]
  - Drug ineffective [Unknown]
